FAERS Safety Report 9378088 (Version 2)
Quarter: 2013Q3

REPORT INFORMATION
  Report Type: Spontaneous
  Country: US (occurrence: US)
  Receive Date: 20130701
  Receipt Date: 20130827
  Transmission Date: 20140515
  Serious: Yes (Death, Other)
  Sender: FDA-Public Use
  Company Number: US-GLAXOSMITHKLINE-A1029117A

PATIENT
  Sex: Male

DRUGS (2)
  1. VOTRIENT [Suspect]
     Indication: GASTRIC SARCOMA
     Route: 065
     Dates: start: 2012
  2. REMICADE [Concomitant]
     Indication: CROHN^S DISEASE

REACTIONS (4)
  - Metastases to lung [Unknown]
  - Metastases to kidney [Unknown]
  - Disease progression [Unknown]
  - Death [Fatal]
